FAERS Safety Report 6201808-2 (Version None)
Quarter: 2009Q2

REPORT INFORMATION
  Report Type: 
  Country: None (occurrence: None)
  Receive Date: 20090526
  Receipt Date: 20090515
  Transmission Date: 20091009
  Serious: Yes (Other)
  Sender: FDA-Public Use
  Company Number: IT-BAXTER-2009BH008850

PATIENT
  Age: 42 Year
  Sex: Female

DRUGS (3)
  1. CYCLOPHOSPHAMIDE [Suspect]
     Indication: BREAST CANCER
     Route: 042
     Dates: start: 20090115, end: 20090410
  2. IXABEPILONE [Suspect]
     Indication: BREAST CANCER
     Route: 042
     Dates: start: 20090410, end: 20090410
  3. DOXORUBICIN HCL [Suspect]
     Indication: BREAST CANCER
     Route: 042
     Dates: start: 20090115, end: 20090410

REACTIONS (1)
  - THYROID CANCER [None]
